FAERS Safety Report 4594921-7 (Version None)
Quarter: 2005Q1

REPORT INFORMATION
  Report Type: 
  Country: None (occurrence: None)
  Receive Date: 20050224
  Receipt Date: 20040726
  Transmission Date: 20050727
  Serious: Yes (Hospitalization)
  Sender: FDA-Public Use
  Company Number: GXKR2004US00731

PATIENT
  Age: 52 Year
  Sex: Female
  Weight: 91 kg

DRUGS (11)
  1. METOCLOPRAMIDE [Suspect]
     Indication: GASTRIC DISORDER
     Dosage: 40-80 MG
     Dates: start: 20021227, end: 20030104
  2. TACROLIMUS (TACROLIMUS) [Suspect]
     Indication: GRAFT VERSUS HOST DISEASE
     Dosage: 2-56 MG
  3. ONDANSETRON HCL [Concomitant]
  4. SIROLIMUS (SIROLIMUS) [Concomitant]
  5. MYCOPHENOLATE MOFETIL (MYCOPHENOLATE MOFETIL) [Concomitant]
  6. PREDNISONE [Concomitant]
  7. URSODIOL (URSODEOXYCHOLIC ACID) [Concomitant]
  8. KETOCONAZOLE [Concomitant]
  9. OMEPRAZOLE [Concomitant]
  10. KETOCONAZOL (KETOCONAZOLE) [Concomitant]
  11. PANTOPRAZOLE (PANTOPRAZOLE) [Concomitant]

REACTIONS (13)
  - ASTHENIA [None]
  - DIARRHOEA [None]
  - DRUG INTERACTION [None]
  - DRUG LEVEL INCREASED [None]
  - HEADACHE [None]
  - NAUSEA [None]
  - NEPHROPATHY TOXIC [None]
  - NEUROTOXICITY [None]
  - PAIN IN EXTREMITY [None]
  - RENAL FAILURE ACUTE [None]
  - RENAL TUBULAR NECROSIS [None]
  - TREMOR [None]
  - VOMITING [None]
